FAERS Safety Report 9527623 (Version 1)
Quarter: 2013Q1

REPORT INFORMATION
  Report Type: Spontaneous
  Country: US (occurrence: None)
  Receive Date: 20130314
  Receipt Date: 20130314
  Transmission Date: 20140127
  Serious: Yes (Other)
  Sender: FDA-Public Use
  Company Number: 1212USA003197

PATIENT
  Age: 53 Year
  Sex: Female

DRUGS (3)
  1. VICTRELIS [Suspect]
     Indication: HEPATITIS C
     Route: 048
     Dates: start: 201210
  2. PEGASYS [Suspect]
     Indication: HEPATITIS C
     Route: 058
  3. RIBASPHERE [Suspect]
     Indication: HEPATITIS C

REACTIONS (2)
  - Pruritus [None]
  - Vomiting [None]
